FAERS Safety Report 6179261-7 (Version None)
Quarter: 2009Q2

REPORT INFORMATION
  Report Type: 
  Country: None (occurrence: None)
  Receive Date: 20090505
  Receipt Date: 20090313
  Transmission Date: 20091009
  Serious: No
  Sender: FDA-Public Use
  Company Number: US-BAYER-200915567NA

PATIENT
  Sex: Female

DRUGS (4)
  1. ANGELIQ [Suspect]
     Indication: HORMONE REPLACEMENT THERAPY
     Dosage: CONTINUOUS
     Route: 048
     Dates: start: 20090109
  2. VAGIFEM [Concomitant]
  3. TOPROL-XL [Concomitant]
     Indication: HYPERTENSION
  4. NASAL SPRAY NOS [Concomitant]
     Indication: MULTIPLE ALLERGIES

REACTIONS (2)
  - BLOOD OESTROGEN DECREASED [None]
  - METRORRHAGIA [None]
